FAERS Safety Report 9865247 (Version 1)
Quarter: 2014Q1

REPORT INFORMATION
  Report Type: Spontaneous
  Country: US (occurrence: US)
  Receive Date: 20140203
  Receipt Date: 20140203
  Transmission Date: 20141002
  Serious: No
  Sender: FDA-Public Use
  Company Number: US-ALLERGAN-1300351US

PATIENT
  Age: 52 Year
  Sex: Female

DRUGS (8)
  1. RESTASIS [Suspect]
     Indication: DRY EYE
     Dosage: 2 GTT, BID
     Route: 047
     Dates: start: 201204, end: 201212
  2. FEM-HRT [Concomitant]
     Indication: HORMONE REPLACEMENT THERAPY
     Dosage: UNK
  3. SIMVASTATIN [Concomitant]
     Indication: BLOOD CHOLESTEROL INCREASED
     Dosage: 10 MG, QD
     Route: 048
  4. DILTIAZEM [Concomitant]
     Indication: HYPERTENSION
     Dosage: UNK UNK, QD
     Route: 048
  5. AMITRIPTYLINE [Concomitant]
     Indication: PROPHYLAXIS
     Dosage: UNK UNK, QHS
     Route: 048
  6. KLONOPIN [Concomitant]
     Indication: ANXIETY
     Dosage: 0.5 MG, BID
     Route: 048
  7. OMEPRAZOLE [Concomitant]
     Indication: GASTROOESOPHAGEAL REFLUX DISEASE
     Dosage: 20 MG, QD
     Route: 048
  8. REFRESH LIQUIGEL OPHTHALMIC [Concomitant]
     Indication: DRY EYE
     Dosage: 2 GTT, PRN
     Route: 047
     Dates: start: 2008

REACTIONS (5)
  - Eye irritation [Recovering/Resolving]
  - Eye discharge [Recovering/Resolving]
  - Foreign body sensation in eyes [Recovering/Resolving]
  - Eye pain [Recovering/Resolving]
  - Vision blurred [Recovering/Resolving]
